FAERS Safety Report 8079783-8 (Version None)
Quarter: 2012Q1

REPORT INFORMATION
  Report Type: 
  Country: None (occurrence: None)
  Receive Date: 20120128
  Receipt Date: 20110729
  Transmission Date: 20120608
  Serious: No
  Sender: FDA-Public Use
  Company Number: US-ABBOTT-11P-163-0843011-00

PATIENT
  Age: 60 Year
  Sex: Male

DRUGS (2)
  1. HUMIRA [Suspect]
     Indication: PSORIASIS
     Dates: start: 20110611
  2. FLOMAX [Concomitant]
     Indication: PROSTATOMEGALY

REACTIONS (2)
  - HEADACHE [None]
  - ABDOMINAL DISCOMFORT [None]
